FAERS Safety Report 11934143 (Version 1)
Quarter: 2016Q1

REPORT INFORMATION
  Report Type: Spontaneous
  Country: US (occurrence: US)
  Receive Date: 20160121
  Receipt Date: 20160121
  Transmission Date: 20160526
  Serious: No
  Sender: FDA-Public Use
  Company Number: US-PERRIGO-14US012695

PATIENT
  Age: 13 Year
  Sex: Male

DRUGS (2)
  1. ACETAMINOPHEN-ASPIRIN-CAFFEINE 1T1 [Suspect]
     Active Substance: ACETAMINOPHEN\ASPIRIN\CAFFEINE
     Indication: MIGRAINE
     Dosage: 2 TABLETS, SINGLE
     Route: 048
     Dates: start: 20141223, end: 20141223
  2. TYLENOL SINUS                      /00446801/ [Concomitant]
     Indication: SINUS HEADACHE
     Dosage: UNK
     Route: 048
     Dates: start: 20141223

REACTIONS (2)
  - Drug administration error [Recovered/Resolved]
  - Drug administered to patient of inappropriate age [Recovered/Resolved]

NARRATIVE: CASE EVENT DATE: 20141223
